FAERS Safety Report 18983992 (Version 3)
Quarter: 2021Q2

REPORT INFORMATION
  Report Type: Spontaneous
  Country: DE (occurrence: DE)
  Receive Date: 20210309
  Receipt Date: 20210610
  Transmission Date: 20210717
  Serious: Yes (Death)
  Sender: FDA-Public Use
  Company Number: DE-ROCHE-2785805

PATIENT
  Age: 65 Year
  Sex: Female

DRUGS (13)
  1. TECENTRIQ [Suspect]
     Active Substance: ATEZOLIZUMAB
     Route: 042
     Dates: start: 20210201
  2. ACTRAPID [Concomitant]
     Active Substance: INSULIN HUMAN
  3. TECENTRIQ [Suspect]
     Active Substance: ATEZOLIZUMAB
     Indication: TRANSITIONAL CELL CARCINOMA METASTATIC
     Dosage: THE PATIENT RECEIVED LAST DOSE OF ATEZOLIZUMAB ON 03/FEB/2021 BEFORE DEATH
     Route: 042
     Dates: start: 20200212
  4. ASPIRIN. [Concomitant]
     Active Substance: ASPIRIN
  5. LANTUS [Concomitant]
     Active Substance: INSULIN GLARGINE
     Dosage: 100 IE/ML
  6. MCP AL [Concomitant]
     Dosage: 1 MG/ML
  7. COLECALCIFEROL [Concomitant]
     Active Substance: CHOLECALCIFEROL
  8. BISOPROLOL [Concomitant]
     Active Substance: BISOPROLOL
  9. DOXAZOSIN [Concomitant]
     Active Substance: DOXAZOSIN MESYLATE
  10. AMLODIPINE [Concomitant]
     Active Substance: AMLODIPINE BESYLATE
  11. L?THYROXINE [Concomitant]
     Active Substance: LEVOTHYROXINE
     Dosage: 50 MICROGRAM/150
  12. SIMVASTATIN. [Concomitant]
     Active Substance: SIMVASTATIN
  13. DOXEPIN [Concomitant]
     Active Substance: DOXEPIN

REACTIONS (2)
  - Death [Fatal]
  - Blood creatinine increased [Unknown]

NARRATIVE: CASE EVENT DATE: 20210207
